FAERS Safety Report 16095389 (Version 1)
Quarter: 2019Q2

REPORT INFORMATION
  Report Type: Spontaneous
  Country: US (occurrence: US)
  Receive Date: 20190320
  Receipt Date: 20190320
  Transmission Date: 20190711
  Serious: Yes (Other)
  Sender: FDA-Public Use
  Company Number: None

PATIENT
  Age: 48 Year
  Sex: Female
  Weight: 57.15 kg

DRUGS (1)
  1. PICATO [Suspect]
     Active Substance: INGENOL MEBUTATE
     Indication: ACTINIC KERATOSIS
     Dosage: ?          QUANTITY:2 TUBES;?
     Route: 061

REACTIONS (10)
  - Skin lesion [None]
  - Application site reaction [None]
  - Application site discolouration [None]
  - Application site pain [None]
  - Insomnia [None]
  - Application site vesicles [None]
  - Application site swelling [None]
  - Application site erythema [None]
  - Application site infection [None]
  - Skin bacterial infection [None]

NARRATIVE: CASE EVENT DATE: 20190312
